FAERS Safety Report 9799980 (Version 1)
Quarter: 2014Q1

REPORT INFORMATION
  Report Type: Spontaneous
  Country: US (occurrence: US)
  Receive Date: 20140106
  Receipt Date: 20140106
  Transmission Date: 20141002
  Serious: No
  Sender: FDA-Public Use
  Company Number: US-GILEAD-2010-0030488

PATIENT
  Age: 88 Year
  Sex: Female

DRUGS (11)
  1. LETAIRIS [Suspect]
     Indication: PULMONARY ARTERIAL HYPERTENSION
     Route: 048
     Dates: start: 20090903
  2. DORZOLAMIDE HCL/TIMO [Concomitant]
  3. FLAXSEED OIL [Concomitant]
  4. MULTI-DAY [Concomitant]
  5. COUMADIN [Concomitant]
  6. PHENYTOIN [Concomitant]
  7. FUROSEMIDE [Concomitant]
  8. POTASSIUM [Concomitant]
  9. NORVASC [Concomitant]
  10. REVATIO [Concomitant]
  11. DIGOXIN [Concomitant]

REACTIONS (1)
  - Diarrhoea [Not Recovered/Not Resolved]
